FAERS Safety Report 6032214-1 (Version None)
Quarter: 2009Q1

REPORT INFORMATION
  Report Type: 
  Country: None (occurrence: None)
  Receive Date: 20090108
  Receipt Date: 20081230
  Transmission Date: 20090719
  Serious: Yes (Other)
  Sender: FDA-Public Use
  Company Number: US-B.I. PHARMACEUTICALS,INC./RIDGEFIELD-2008-BP-19234BP

PATIENT
  Age: 79 Year
  Sex: Female

DRUGS (3)
  1. MIRAPEX [Suspect]
     Indication: PARKINSON'S DISEASE
  2. VALTREX [Suspect]
     Indication: HERPES ZOSTER
     Dosage: 3000MG
     Route: 048
     Dates: start: 20081021
  3. CIPROFLOXACIN HCL [Concomitant]
     Dates: start: 20081023

REACTIONS (10)
  - DRUG INTERACTION [None]
  - DYSKINESIA [None]
  - DYSPNOEA [None]
  - HERPES ZOSTER [None]
  - IMMOBILE [None]
  - INJURY [None]
  - MENTAL STATUS CHANGES [None]
  - PARKINSON'S DISEASE [None]
  - THIRST [None]
  - URINARY TRACT DISORDER [None]
